FAERS Safety Report 13643538 (Version 1)
Quarter: 2017Q2

REPORT INFORMATION
  Report Type: Spontaneous
  Country: FR (occurrence: FR)
  Receive Date: 20170612
  Receipt Date: 20170612
  Transmission Date: 20170830
  Serious: Yes (Other)
  Sender: FDA-Public Use
  Company Number: FR-BAYER-2017-105855

PATIENT
  Age: 45 Year
  Sex: Female
  Weight: 80 kg

DRUGS (1)
  1. MIRENA [Suspect]
     Active Substance: LEVONORGESTREL
     Dosage: 20 MCG/24HR, CONT
     Route: 015

REACTIONS (7)
  - Headache [Unknown]
  - Hypertrichosis [Unknown]
  - Weight increased [Unknown]
  - Libido decreased [Unknown]
  - Depression [Unknown]
  - Visual acuity reduced [Unknown]
  - Back pain [Unknown]
